FAERS Safety Report 5735011-7 (Version None)
Quarter: 2008Q2

REPORT INFORMATION
  Report Type: 
  Country: None (occurrence: None)
  Receive Date: 20080512
  Receipt Date: 20080505
  Transmission Date: 20081010
  Serious: Yes (Other)
  Sender: FDA-Public Use
  Company Number: US-MERCK-0804USA05134

PATIENT
  Age: 17 Year
  Sex: Male

DRUGS (1)
  1. SINGULAIR [Suspect]
     Route: 048
     Dates: start: 20080314, end: 20080316

REACTIONS (3)
  - ABDOMINAL PAIN UPPER [None]
  - SUICIDAL IDEATION [None]
  - THINKING ABNORMAL [None]
